FAERS Safety Report 7439679-9 (Version None)
Quarter: 2011Q2

REPORT INFORMATION
  Report Type: 
  Country: None (occurrence: None)
  Receive Date: 20110427
  Receipt Date: 20110413
  Transmission Date: 20111010
  Serious: Yes (Disabling)
  Sender: FDA-Public Use
  Company Number: PHHY2009JP14964

PATIENT

DRUGS (3)
  1. MYONAL [Concomitant]
     Dosage: 150 MG, UNK
     Route: 048
     Dates: start: 20080910
  2. LOXONIN [Concomitant]
     Dosage: 3 DF, UNK
     Route: 048
     Dates: start: 20080612
  3. AMN107 [Suspect]
     Indication: CHRONIC MYELOID LEUKAEMIA
     Dosage: 800 MG, UNK
     Route: 048
     Dates: start: 20090326, end: 20110217

REACTIONS (3)
  - ELECTROCARDIOGRAM ST-T SEGMENT ABNORMAL [None]
  - BENIGN OVARIAN TUMOUR [None]
  - HYPOAESTHESIA [None]
